FAERS Safety Report 6315234-9 (Version None)
Quarter: 2009Q3

REPORT INFORMATION
  Report Type: 
  Country: None (occurrence: None)
  Receive Date: 20090819
  Receipt Date: 20090810
  Transmission Date: 20100115
  Serious: Yes (Hospitalization)
  Sender: FDA-Public Use
  Company Number: PHHY2009SE33926

PATIENT
  Sex: Female

DRUGS (2)
  1. ZELMAC [Suspect]
     Indication: CONSTIPATION
     Dosage: 6 MG, 2 TAB/DAY
     Route: 048
  2. LACTULOSE [Concomitant]

REACTIONS (2)
  - HYPERTENSION [None]
  - RETINAL VEIN THROMBOSIS [None]
